FAERS Safety Report 5304813-3 (Version None)
Quarter: 2007Q2

REPORT INFORMATION
  Report Type: 
  Country: None (occurrence: None)
  Receive Date: 20070423
  Receipt Date: 20070411
  Transmission Date: 20071010
  Serious: Yes (Other)
  Sender: FDA-Public Use
  Company Number: US-ELI_LILLY_AND_COMPANY-US200702001981

PATIENT
  Age: 31 Year
  Sex: Female

DRUGS (23)
  1. CYMBALTA [Suspect]
     Indication: DEPRESSION
     Dosage: 30 MG, DAILY (1/D)
     Dates: start: 20060104, end: 20060228
  2. CYMBALTA [Suspect]
     Dosage: 60 MG, UNK
     Dates: start: 20060821, end: 20070101
  3. CYMBALTA [Suspect]
     Dosage: 30 MG, EACH EVENING
     Dates: start: 20060328, end: 20060820
  4. CYMBALTA [Suspect]
     Dosage: 20 MG, UNK
     Dates: start: 20070205, end: 20070219
  5. CYMBALTA [Suspect]
     Dosage: 30 MG, UNK
     Dates: start: 20070101, end: 20070204
  6. CYMBALTA [Suspect]
     Dosage: UNK MG, UNK
  7. CYMBALTA [Suspect]
     Dosage: UNK MG, UNK
     Dates: start: 20060301, end: 20060327
  8. TRAZODONE HCL [Concomitant]
     Indication: INSOMNIA
     Dosage: 100 MG, EACH EVENING
     Dates: end: 20060302
  9. TRAZODONE HCL [Concomitant]
     Dosage: UNK MG, AS NEEDED
     Dates: start: 20060328
  10. TRAZODONE HCL [Concomitant]
     Dosage: 100 MG, EACH EVENING
     Dates: start: 20060621, end: 20060820
  11. TRAZODONE HCL [Concomitant]
     Dosage: 200 MG, EACH EVENING
     Dates: start: 20060621, end: 20060820
  12. TRAZODONE HCL [Concomitant]
     Dosage: 200 MG, EACH EVENING
     Dates: start: 20060821
  13. TRAZODONE HCL [Concomitant]
     Dosage: 100 MG, EACH EVENING
     Dates: start: 20070314
  14. LITHIUM CARBONATE [Concomitant]
     Dosage: 300 MG, 2/D
  15. RESTORIL [Concomitant]
     Indication: INSOMNIA
     Dosage: 7.5 MG, EACH EVENING
     Dates: start: 20060302
  16. RESTORIL [Concomitant]
     Dosage: 15 MG, EACH EVENING
     Dates: start: 20060302
  17. PROZAC [Suspect]
     Indication: MUSCLE SPASMS
     Dosage: 20 MG, DAILY (1/D)
     Dates: start: 20060302, end: 20060301
  18. PROZAC [Suspect]
     Dosage: UNK MG, UNK
     Dates: start: 20070301
  19. PROZAC [Suspect]
     Dosage: UNK MG, UNK
     Dates: end: 20060104
  20. LITHOBID [Concomitant]
     Dosage: 300 MG, EACH EVENING
     Route: 048
     Dates: start: 20060621
  21. FLEXERIL [Concomitant]
     Dosage: 10 MG, 3/D
  22. ZELNORM [Concomitant]
     Indication: IRRITABLE BOWEL SYNDROME
     Dosage: UNK, UNK
     Dates: start: 20060119, end: 20060302
  23. MINERAL OIL EMULSION [Concomitant]
     Indication: CONSTIPATION
     Dosage: UNK ML, UNK
     Route: 048
     Dates: start: 20060302

REACTIONS (21)
  - ABDOMINAL PAIN [None]
  - AGITATION [None]
  - BLOOD GLUCOSE INCREASED [None]
  - BLOOD URINE PRESENT [None]
  - CHOLECYSTITIS CHRONIC [None]
  - CONSTIPATION [None]
  - DEPRESSED MOOD [None]
  - DEPRESSION [None]
  - FEELING ABNORMAL [None]
  - HEPATIC ENZYME INCREASED [None]
  - HEPATIC STEATOSIS [None]
  - HYPERHIDROSIS [None]
  - INSOMNIA [None]
  - IRRITABLE BOWEL SYNDROME [None]
  - KETONURIA [None]
  - MALAISE [None]
  - MEMORY IMPAIRMENT [None]
  - MUSCLE SPASMS [None]
  - MUSCULAR WEAKNESS [None]
  - NAUSEA [None]
  - TACHYCARDIA [None]
